FAERS Safety Report 15082691 (Version 1)
Quarter: 2018Q2

REPORT INFORMATION
  Report Type: Spontaneous
  Country: FR (occurrence: FR)
  Receive Date: 20180628
  Receipt Date: 20180628
  Transmission Date: 20180711
  Serious: Yes (Hospitalization)
  Sender: FDA-Public Use
  Company Number: FR-MYLANLABS-2018M1044545

PATIENT
  Age: 32 Year
  Sex: Male

DRUGS (1)
  1. PREDNISOLONE MYLAN [Suspect]
     Active Substance: PREDNISOLONE
     Indication: INFLUENZA
     Dosage: 60 MG, QD
     Route: 048
     Dates: start: 20180312, end: 20180315

REACTIONS (3)
  - Dyspnoea [Recovered/Resolved]
  - Musculoskeletal stiffness [Recovered/Resolved]
  - Haemoptysis [Recovered/Resolved]

NARRATIVE: CASE EVENT DATE: 20180313
